FAERS Safety Report 5615226-9 (Version None)
Quarter: 2008Q1

REPORT INFORMATION
  Report Type: 
  Country: None (occurrence: None)
  Receive Date: 20080206
  Receipt Date: 20080130
  Transmission Date: 20080703
  Serious: Yes (Death, Hospitalization, Other)
  Sender: FDA-Public Use
  Company Number: ES-AVENTIS-200711987EU

PATIENT
  Age: 77 Year
  Sex: Female

DRUGS (13)
  1. FUROSEMIDE [Suspect]
     Dates: start: 20060101
  2. OMEPRAZOLE [Suspect]
     Dates: start: 20070101
  3. CEFUROXIME AXETIL [Suspect]
     Dosage: DOSE: UNK
     Dates: start: 20070101
  4. NSAID'S [Suspect]
     Dates: start: 20060101
  5. FELDENE [Suspect]
     Dosage: DOSE: UNK
     Dates: start: 20060101
  6. VERAPAMIL HCL [Suspect]
     Dosage: DOSE: UNK
     Dates: start: 20060101
  7. ASPIRIN [Suspect]
     Dosage: DOSE: UNK
     Dates: start: 20060101
  8. FOSAMAX [Suspect]
     Dosage: DOSE: UNK
     Dates: start: 20060101
  9. DEANXIT                            /00428501/ [Suspect]
     Dates: start: 20060101
  10. SPIRIVA [Concomitant]
  11. PULMICORT [Concomitant]
  12. NYLIDRIN [Concomitant]
  13. IRON [Concomitant]
     Route: 048

REACTIONS (1)
  - TOXIC EPIDERMAL NECROLYSIS [None]
